FAERS Safety Report 26007115 (Version 1)
Quarter: 2025Q4

REPORT INFORMATION
  Report Type: Spontaneous
  Country: US (occurrence: US)
  Receive Date: 20251106
  Receipt Date: 20251106
  Transmission Date: 20260117
  Serious: No
  Sender: BAYER HEALTHCARE LLC
  Company Number: US-BAYER-2025A145071

PATIENT
  Sex: Female

DRUGS (5)
  1. CLARITIN [Suspect]
     Active Substance: LORATADINE
     Dosage: UNK
  2. PULMICORT TURBUHALER [Concomitant]
     Active Substance: BUDESONIDE
  3. ALBUTEROL [Concomitant]
     Active Substance: ALBUTEROL
  4. VITAMINS [Concomitant]
     Active Substance: VITAMINS
  5. MAGNESIUM [Concomitant]
     Active Substance: MAGNESIUM

REACTIONS (1)
  - Maternal exposure during pregnancy [Unknown]
